FAERS Safety Report 5425187-3 (Version None)
Quarter: 2007Q3

REPORT INFORMATION
  Report Type: 
  Country: None (occurrence: None)
  Receive Date: 20070824
  Receipt Date: 20070814
  Transmission Date: 20080115
  Serious: Yes (Hospitalization)
  Sender: FDA-Public Use
  Company Number: GB-ROCHE-512465

PATIENT
  Age: 38 Year
  Sex: Female
  Weight: 93 kg

DRUGS (2)
  1. XENICAL [Suspect]
     Indication: OBESITY
     Route: 048
     Dates: start: 20070430, end: 20070724
  2. PARACETAMOL [Suspect]
     Indication: DRUG USE FOR UNKNOWN INDICATION
     Route: 065

REACTIONS (4)
  - DRUG HYPERSENSITIVITY [None]
  - ENDOMETRIAL ABLATION [None]
  - HAEMORRHAGE URINARY TRACT [None]
  - MALAISE [None]
